FAERS Safety Report 4383773-6 (Version None)
Quarter: 2004Q2

REPORT INFORMATION
  Report Type: 
  Country: None (occurrence: None)
  Receive Date: 20040608
  Receipt Date: 20030701
  Transmission Date: 20050107
  Serious: Yes (Other)
  Sender: FDA-Public Use
  Company Number: 200312232BCC

PATIENT
  Age: 63 Year
  Sex: Male
  Weight: 81.6475 kg

DRUGS (4)
  1. ALEVE [Suspect]
     Indication: PAIN
     Dosage: 220 MG, ONCE, ORAL
     Route: 048
     Dates: start: 20030701
  2. METOPROLOL TARTRATE [Concomitant]
  3. DILTIAZEM [Concomitant]
  4. PRILOSEC [Concomitant]

REACTIONS (4)
  - HYPERSENSITIVITY [None]
  - PARAESTHESIA [None]
  - PRURITUS [None]
  - SWOLLEN TONGUE [None]
